FAERS Safety Report 20966116 (Version 1)
Quarter: 2022Q2

REPORT INFORMATION
  Report Type: Spontaneous
  Country: FR (occurrence: None)
  Receive Date: 20220616
  Receipt Date: 20220616
  Transmission Date: 20220721
  Serious: Yes (Congenital Anomaly)
  Sender: FDA-Public Use
  Company Number: 2022A213838

PATIENT
  Age: 1 Day
  Sex: Female
  Weight: 4.8 kg

DRUGS (3)
  1. QUETIAPINE [Suspect]
     Active Substance: QUETIAPINE
     Indication: Bipolar disorder
     Route: 064
     Dates: start: 202202, end: 20220427
  2. TERALITHE [Suspect]
     Active Substance: LITHIUM CARBONATE
     Indication: Bipolar disorder
     Route: 064
     Dates: start: 20210813, end: 20220427
  3. OXAZEPAM [Suspect]
     Active Substance: OXAZEPAM
     Indication: Bipolar disorder
     Dosage: 10 MG 2X/J
     Route: 064
     Dates: start: 202102, end: 20220427

REACTIONS (1)
  - Hypotonia [Recovering/Resolving]

NARRATIVE: CASE EVENT DATE: 20220427
